FAERS Safety Report 5894227-X (Version None)
Quarter: 2008Q3

REPORT INFORMATION
  Report Type: 
  Country: None (occurrence: None)
  Receive Date: 20080923
  Receipt Date: 20080228
  Transmission Date: 20090109
  Serious: No
  Sender: FDA-Public Use
  Company Number: US-ASTRAZENECA-2008UW04135

PATIENT
  Age: 32 Year
  Sex: Male
  Weight: 77.1 kg

DRUGS (4)
  1. SEROQUEL [Suspect]
     Route: 048
  2. METOPROLOL TARTRATE [Concomitant]
  3. LISINOPRIL [Concomitant]
  4. LEXAPRO [Concomitant]

REACTIONS (1)
  - DRUG SCREEN FALSE POSITIVE [None]
